FAERS Safety Report 9166812 (Version 1)
Quarter: 2012Q4

REPORT INFORMATION
  Report Type: 
  Country: US (occurrence: US)
  Receive Date: 20121107
  Receipt Date: 20121107
  Transmission Date: 20130627
  Serious: Yes (Hospitalization, Other)
  Sender: FDA-Public Use
  Company Number: US-RB-046322-12

PATIENT
  Age: 52 Year
  Sex: Female

DRUGS (5)
  1. SUBOXONE TABLETS [Suspect]
     Route: 060
     Dates: start: 200812, end: 2010
  2. SUBOXONE TABLETS [Suspect]
     Indication: DRUG DEPENDENCE
     Route: 060
     Dates: start: 2010, end: 2012
  3. SUBOXONE TABLETS [Suspect]
     Route: 060
     Dates: start: 2012
  4. SUBOXONE FILM [Suspect]
     Indication: DRUG DEPENDENCE
     Route: 060
     Dates: start: 201010, end: 2010
  5. SUBOXONE FILM [Suspect]
     Route: 060
     Dates: start: 2012, end: 2012

REACTIONS (8)
  - Wrong technique in drug usage process [Recovered/Resolved]
  - Headache [Recovered/Resolved]
  - Dysgeusia [Recovered/Resolved]
  - Dry mouth [Recovered/Resolved]
  - Therapeutic response decreased [Recovered/Resolved]
  - Oral pain [Recovered/Resolved]
  - Cholelithiasis [Recovered/Resolved]
  - Laryngitis [Not Recovered/Not Resolved]
